FAERS Safety Report 21201311 (Version 2)
Quarter: 2022Q3

REPORT INFORMATION
  Report Type: Spontaneous
  Country: US (occurrence: US)
  Receive Date: 20220811
  Receipt Date: 20220826
  Transmission Date: 20221027
  Serious: Yes (Hospitalization)
  Sender: FDA-Public Use
  Company Number: US-TEVA-2022-US-2062553

PATIENT
  Age: 50 Year
  Sex: Female

DRUGS (1)
  1. DOXORUBICIN [Suspect]
     Active Substance: DOXORUBICIN
     Indication: Hepatocellular carcinoma
     Dosage: TRANSARTERIAL CHEMOEMBOLISATION, 150 MG
     Route: 013

REACTIONS (3)
  - Systemic toxicity [Recovering/Resolving]
  - Neutropenia [Recovered/Resolved]
  - Pulmonary alveolar haemorrhage [Recovering/Resolving]
